FAERS Safety Report 19514330 (Version 1)
Quarter: 2021Q3

REPORT INFORMATION
  Report Type: Report from Study
  Country: GR (occurrence: GR)
  Receive Date: 20210709
  Receipt Date: 20210709
  Transmission Date: 20211014
  Serious: Yes (Other)
  Sender: FDA-Public Use
  Company Number: GR-JNJFOC-20210707399

PATIENT

DRUGS (2)
  1. REMICADE [Suspect]
     Active Substance: INFLIXIMAB
     Indication: CROHN^S DISEASE
     Route: 042
  2. ADALIMUMAB [Suspect]
     Active Substance: ADALIMUMAB
     Indication: CROHN^S DISEASE
     Route: 065

REACTIONS (9)
  - Infusion related reaction [Unknown]
  - Arthralgia [Unknown]
  - Vasculitis [Unknown]
  - Lupus-like syndrome [Unknown]
  - Injection site reaction [Unknown]
  - Psoriasis [Unknown]
  - Drug hypersensitivity [Unknown]
  - Dermatitis psoriasiform [Unknown]
  - Acute febrile neutrophilic dermatosis [Unknown]
